FAERS Safety Report 9125044 (Version 2)
Quarter: 2014Q2

REPORT INFORMATION
  Report Type: Spontaneous
  Country: TW (occurrence: TW)
  Receive Date: 20130227
  Receipt Date: 20140617
  Transmission Date: 20141212
  Serious: Yes (Hospitalization)
  Sender: FDA-Public Use
  Company Number: PHHY2013TW018540

PATIENT
  Age: 58 Year
  Sex: Male

DRUGS (6)
  1. 5-FLUOROURACIL [Suspect]
     Indication: ADENOCARCINOMA OF COLON
     Dosage: 2400 MG/M2, UNK
     Route: 041
  2. 5-FLUOROURACIL [Suspect]
     Indication: METASTASES TO LIVER
     Dosage: 1200 MG/M2, UNK
     Route: 041
  3. IRINOTECAN [Concomitant]
     Indication: ADENOCARCINOMA OF COLON
     Dosage: 180 MG/M2, UNK
  4. IRINOTECAN [Concomitant]
     Indication: METASTASES TO LIVER
  5. BEVACIZUMAB [Concomitant]
     Indication: ADENOCARCINOMA OF COLON
     Dosage: 5 MG/KG, UNK
  6. BEVACIZUMAB [Concomitant]
     Indication: METASTASES TO LIVER

REACTIONS (12)
  - Hyperammonaemic encephalopathy [Recovered/Resolved]
  - Renal failure acute [Recovered/Resolved]
  - Altered state of consciousness [Recovered/Resolved]
  - Nausea [Recovered/Resolved]
  - Vomiting [Recovered/Resolved]
  - Coma scale abnormal [Recovered/Resolved]
  - Dysarthria [Recovered/Resolved]
  - Lethargy [Recovered/Resolved]
  - Somnolence [Recovered/Resolved]
  - Confusional state [Recovered/Resolved]
  - Blood creatinine increased [Recovered/Resolved]
  - Ammonia increased [Recovered/Resolved]
